FAERS Safety Report 8276920-7 (Version None)
Quarter: 2012Q2

REPORT INFORMATION
  Report Type: 
  Country: None (occurrence: None)
  Receive Date: 20120412
  Receipt Date: 20120409
  Transmission Date: 20120825
  Serious: Yes (Other)
  Sender: FDA-Public Use
  Company Number: US-PFIZER INC-2012088189

PATIENT
  Sex: Female
  Weight: 64 kg

DRUGS (3)
  1. PRAVASTATIN SODIUM [Suspect]
     Indication: BLOOD CHOLESTEROL INCREASED
     Dosage: 20 MG DAILY
     Dates: start: 20120301, end: 20120301
  2. SIMVASTATIN [Suspect]
     Indication: BLOOD CHOLESTEROL INCREASED
     Dosage: UNK
     Dates: start: 20110901
  3. ATORVASTATIN CALCIUM [Suspect]
     Indication: BLOOD CHOLESTEROL INCREASED
     Dosage: UNK

REACTIONS (11)
  - ERYTHEMA [None]
  - DYSPEPSIA [None]
  - SUICIDAL IDEATION [None]
  - PHARYNGEAL OEDEMA [None]
  - FEELING ABNORMAL [None]
  - CONSTIPATION [None]
  - MALAISE [None]
  - RASH [None]
  - NAUSEA [None]
  - PAIN [None]
  - PRURITUS GENERALISED [None]
